FAERS Safety Report 15480464 (Version 1)
Quarter: 2018Q4

REPORT INFORMATION
  Report Type: Spontaneous
  Country: CN (occurrence: CN)
  Receive Date: 20181009
  Receipt Date: 20181009
  Transmission Date: 20190205
  Serious: Yes (Other)
  Sender: FDA-Public Use
  Company Number: CN-BAXTER-2018BAX025108

PATIENT
  Age: 53 Year
  Sex: Female
  Weight: 55 kg

DRUGS (5)
  1. 0.9% SODIUM CHLORIDE INJECTION [Suspect]
     Active Substance: SODIUM CHLORIDE
     Indication: FLUID IMBALANCE
  2. VANCOMYCIN [Suspect]
     Active Substance: VANCOMYCIN
     Indication: ANTI-INFECTIVE THERAPY
     Route: 041
     Dates: start: 20180817, end: 20180818
  3. VANCOMYCIN [Suspect]
     Active Substance: VANCOMYCIN
     Dosage: DRUG RE-INTRODUCED
     Route: 041
     Dates: start: 20180818, end: 20180818
  4. 0.9% SODIUM CHLORIDE INJECTION [Suspect]
     Active Substance: SODIUM CHLORIDE
     Indication: ELECTROLYTE IMBALANCE
     Route: 041
     Dates: start: 20180817, end: 20180818
  5. 0.9% SODIUM CHLORIDE INJECTION [Suspect]
     Active Substance: SODIUM CHLORIDE
     Indication: HEAT ILLNESS
     Dosage: DRUG RE-INTRODUCED
     Route: 041
     Dates: start: 20180818, end: 20180818

REACTIONS (4)
  - Urticaria papular [Unknown]
  - Erythema [Recovering/Resolving]
  - Condition aggravated [Recovering/Resolving]
  - Rash [Recovered/Resolved]

NARRATIVE: CASE EVENT DATE: 20180818
